FAERS Safety Report 9100885 (Version 4)
Quarter: 2014Q1

REPORT INFORMATION
  Report Type: Report from Study
  Country: AU (occurrence: AU)
  Receive Date: 20130215
  Receipt Date: 20140324
  Transmission Date: 20141002
  Serious: Yes (Other)
  Sender: FDA-Public Use
  Company Number: PHHY2013AU014591

PATIENT
  Age: 59 Year
  Sex: Female

DRUGS (4)
  1. ACLASTA [Suspect]
     Dosage: 5 MG, UNK
     Route: 042
     Dates: start: 20091214
  2. ACLASTA [Suspect]
     Dosage: 5 MG, UNK
     Route: 042
     Dates: start: 20101214
  3. ACLASTA [Suspect]
     Dosage: 5 MG, UNK
     Route: 042
     Dates: start: 20111229
  4. ACLASTA [Suspect]
     Dosage: 5 MG, UNK
     Route: 042
     Dates: start: 20130212

REACTIONS (7)
  - Acinetobacter infection [Recovering/Resolving]
  - Malaise [Recovering/Resolving]
  - Lower respiratory tract infection fungal [Unknown]
  - Fall [Recovering/Resolving]
  - Musculoskeletal discomfort [Recovering/Resolving]
  - Infection [Unknown]
  - Headache [Recovering/Resolving]
